FAERS Safety Report 12877756 (Version 1)
Quarter: 2016Q4

REPORT INFORMATION
  Report Type: Spontaneous
  Country: US (occurrence: US)
  Receive Date: 20161024
  Receipt Date: 20161024
  Transmission Date: 20170207
  Serious: No
  Sender: FDA-Public Use
  Company Number: US-PFIZER INC-2016491704

PATIENT
  Age: 78 Year
  Sex: Female
  Weight: 63 kg

DRUGS (6)
  1. LISINOPRIL. [Concomitant]
     Active Substance: LISINOPRIL
     Indication: BLOOD PRESSURE ABNORMAL
     Dosage: 10 MG, UNK
  2. ADVIL [Suspect]
     Active Substance: IBUPROFEN
     Indication: MUSCULOSKELETAL CHEST PAIN
     Dosage: THREE 200 MG, LIQUID GELS, ORALLY, EVERY EIGHT HOURS
     Route: 048
     Dates: start: 20161019
  3. METHENAMINE SULFOSALICYLATE [Concomitant]
     Active Substance: METHENAMINE SULFOSALICYLATE
     Indication: CYSTITIS
     Dosage: 1 G, UNK
  4. VESICARE [Concomitant]
     Active Substance: SOLIFENACIN SUCCINATE
     Indication: BLADDER SPASM
     Dosage: 10 MG, UNK
  5. SIMVASTATIN. [Concomitant]
     Active Substance: SIMVASTATIN
     Indication: BLOOD CHOLESTEROL ABNORMAL
     Dosage: 5 MG, UNK
  6. DICYCLOMINE [Concomitant]
     Active Substance: DICYCLOMINE HYDROCHLORIDE
     Indication: ABDOMINAL PAIN UPPER
     Dosage: 10 MG, UNK

REACTIONS (1)
  - Drug effect decreased [Unknown]
